FAERS Safety Report 6934237-4 (Version None)
Quarter: 2010Q3

REPORT INFORMATION
  Report Type: 
  Country: None (occurrence: None)
  Receive Date: 20100820
  Receipt Date: 20100806
  Transmission Date: 20110219
  Serious: Yes (Other)
  Sender: FDA-Public Use
  Company Number: JP-PFIZER INC-2010099376

PATIENT
  Age: 75 Year
  Sex: Female

DRUGS (2)
  1. XALATAN [Suspect]
  2. XALATAN [Suspect]
     Indication: GLAUCOMA
     Dosage: UNK
     Route: 047
     Dates: start: 20100614, end: 20100726

REACTIONS (2)
  - EYE IRRITATION [None]
  - INTRAOCULAR PRESSURE INCREASED [None]
